FAERS Safety Report 14442235 (Version 1)
Quarter: 2018Q1

REPORT INFORMATION
  Report Type: Spontaneous
  Country: US (occurrence: US)
  Receive Date: 20180125
  Receipt Date: 20180125
  Transmission Date: 20180509
  Serious: Yes (Death)
  Sender: FDA-Public Use
  Company Number: US-PARI RESPIRATORY EQUIPMENT, INC.-2018PAR00005

PATIENT
  Age: 80 Year
  Sex: Female

DRUGS (19)
  1. PULMOZYME [Concomitant]
     Active Substance: DORNASE ALFA
  2. HYDROCODONE BITARTRATE AND ACETAMINOPHEN [Concomitant]
     Active Substance: ACETAMINOPHEN\HYDROCODONE BITARTRATE
  3. HALOPERIDOL. [Concomitant]
     Active Substance: HALOPERIDOL
  4. HYOSCYAMINE. [Concomitant]
     Active Substance: HYOSCYAMINE
  5. ALBUTEROL. [Concomitant]
     Active Substance: ALBUTEROL
  6. METHOCARBOMOL [Concomitant]
     Active Substance: METHOCARBAMOL
  7. PROPRANOLOL ER [Concomitant]
     Active Substance: PROPRANOLOL HYDROCHLORIDE
  8. ALPRAZOLAM. [Concomitant]
     Active Substance: ALPRAZOLAM
  9. LATANOPROST. [Concomitant]
     Active Substance: LATANOPROST
  10. CITALOPRAM [Concomitant]
     Active Substance: CITALOPRAM HYDROBROMIDE
  11. TOBRAMYCIN. [Suspect]
     Active Substance: TOBRAMYCIN
     Indication: BRONCHIECTASIS
     Dosage: 300 MG, 1X/DAY
     Route: 055
     Dates: start: 20150626, end: 20180109
  12. NYSTOP [Concomitant]
     Active Substance: NYSTATIN
  13. CYANOCOBALAMIN. [Concomitant]
     Active Substance: CYANOCOBALAMIN
  14. LIDOCAINE. [Concomitant]
     Active Substance: LIDOCAINE
  15. ESTRADIOL. [Concomitant]
     Active Substance: ESTRADIOL
  16. ACETYLCYSTEINE. [Concomitant]
     Active Substance: ACETYLCYSTEINE
  17. LORAZEPAM. [Concomitant]
     Active Substance: LORAZEPAM
  18. MORPHINE SULFATE. [Concomitant]
     Active Substance: MORPHINE SULFATE
  19. METHADONE [Concomitant]
     Active Substance: METHADONE HYDROCHLORIDE

REACTIONS (1)
  - Death [Fatal]

NARRATIVE: CASE EVENT DATE: 20180109
